FAERS Safety Report 12560251 (Version 1)
Quarter: 2016Q3

REPORT INFORMATION
  Report Type: Spontaneous
  Country: US (occurrence: None)
  Receive Date: 20160714
  Receipt Date: 20160714
  Transmission Date: 20161109
  Serious: Yes (Hospitalization)
  Sender: FDA-Public Use
  Company Number: None

PATIENT
  Age: 64 Year
  Sex: Male
  Weight: 69.8 kg

DRUGS (1)
  1. INTRON A [Suspect]
     Active Substance: INTERFERON ALFA-2B
     Dosage: 12MU
     Dates: end: 20121019

REACTIONS (9)
  - Neutrophil count decreased [None]
  - Platelet count decreased [None]
  - Oropharyngeal pain [None]
  - Chills [None]
  - Peritonsillar abscess [None]
  - Pyrexia [None]
  - Ear pain [None]
  - Otitis media [None]
  - Cough [None]

NARRATIVE: CASE EVENT DATE: 20121018
